FAERS Safety Report 4598227-1 (Version None)
Quarter: 2005Q1

REPORT INFORMATION
  Report Type: 
  Country: None (occurrence: None)
  Receive Date: 20050302
  Receipt Date: 20050215
  Transmission Date: 20050727
  Serious: Yes (Life-Threatening, Hospitalization, Other)
  Sender: FDA-Public Use
  Company Number: A-US2004-06278

PATIENT
  Age: 56 Year
  Sex: Female

DRUGS (28)
  1. TRACLEER [Suspect]
     Indication: PULMONARY HYPERTENSION
     Dosage: 125 MG, BID, ORAL
     Route: 048
     Dates: start: 20040401
  2. LASIX [Concomitant]
  3. PREDNISONE [Concomitant]
  4. AVANDIA (ROSIGILITAZONE MALEATE) [Concomitant]
  5. ZAROXOLYN [Concomitant]
  6. ATENOLOL [Concomitant]
  7. GLUCOPHAGE [Concomitant]
  8. NEURONTIN [Concomitant]
  9. TAMBOCOR (FLECAINIDE) [Concomitant]
  10. ZESTRIL [Concomitant]
  11. SYNTHROID [Concomitant]
  12. WARFARIN SODIUM [Concomitant]
  13. FOLIC ACID [Concomitant]
  14. CALCIM CITRATE + VITAMIN D (CALCIUM CITRATE) [Concomitant]
  15. METHOTREXATE [Concomitant]
  16. ASPIRIN [Concomitant]
  17. CATAPRES PATCH (CLONIDINE) [Concomitant]
  18. LIDODERM PATCH 5% (LIDOCAINE) [Concomitant]
  19. HUMULIN R [Concomitant]
  20. LANTUS INSULIN (INSULIN) [Concomitant]
  21. OXYCONTIN [Concomitant]
  22. OXYCODONE HCL [Concomitant]
  23. ELAVIL [Concomitant]
  24. BACTROBAN OINTMENT 2% (MUPIROCIN) [Concomitant]
  25. HYDROCORTISONE CREAM 2.5% (HYDROCORTISONE) [Concomitant]
  26. MULTIVITAMINS (ERGOCALCIFEROL, FOLIC ACID, NOCOTINAMIDE, PANTHENOL, RE [Concomitant]
  27. B COMPLEX (NICOTINAMIDE, PYRIDOXINE HYDROCHLORIDE, RIBOFLAVIN THIAMINE [Concomitant]
  28. NEXIUM [Concomitant]

REACTIONS (7)
  - ASTHENIA [None]
  - HYPOXIA [None]
  - NEUROPATHY PERIPHERAL [None]
  - PYODERMA GANGRENOSUM [None]
  - SKIN GRAFT [None]
  - SKIN LESION [None]
  - SKIN NECROSIS [None]
